FAERS Safety Report 5474643-0 (Version None)
Quarter: 2007Q4

REPORT INFORMATION
  Report Type: 
  Country: None (occurrence: None)
  Receive Date: 20071002
  Receipt Date: 20070927
  Transmission Date: 20080405
  Serious: Yes (Hospitalization)
  Sender: FDA-Public Use
  Company Number: US-ASTRAZENECA-2007UW22654

PATIENT
  Age: 35 Year
  Sex: Female
  Weight: 72.1 kg

DRUGS (5)
  1. SEROQUEL [Suspect]
     Indication: BIPOLAR DISORDER
     Dates: end: 20070601
  2. EFFEXOR [Concomitant]
  3. VICODIN [Concomitant]
  4. METHACARBONAL [Concomitant]
  5. ATIVAN [Concomitant]

REACTIONS (3)
  - MENTAL DISORDER [None]
  - THYROID FUNCTION TEST ABNORMAL [None]
  - THYROID NEOPLASM [None]
